FAERS Safety Report 5262410-2 (Version None)
Quarter: 2007Q1

REPORT INFORMATION
  Report Type: 
  Country: None (occurrence: None)
  Receive Date: 20070309
  Receipt Date: 20070309
  Transmission Date: 20070707
  Serious: No
  Sender: FDA-Public Use
  Company Number: None

PATIENT
  Age: 22 Year
  Sex: Male
  Weight: 80 kg

DRUGS (1)
  1. ISONIAZID [Suspect]
     Dosage: 300MG

REACTIONS (1)
  - LIVER FUNCTION TEST ABNORMAL [None]
